FAERS Safety Report 24994279 (Version 1)
Quarter: 2025Q1

REPORT INFORMATION
  Report Type: Spontaneous
  Country: US (occurrence: None)
  Receive Date: 20250220
  Receipt Date: 20250220
  Transmission Date: 20250409
  Serious: Yes (Hospitalization)
  Sender: FDA-CTU
  Company Number: None

PATIENT
  Age: 63 Year
  Sex: Male
  Weight: 95 kg

DRUGS (1)
  1. AMIODARONE HYDROCHLORIDE [Suspect]
     Active Substance: AMIODARONE HYDROCHLORIDE
     Indication: Atrial fibrillation
     Dates: start: 20241010, end: 20241015

REACTIONS (9)
  - Respiratory distress [None]
  - Atrial fibrillation [None]
  - Pyrexia [None]
  - Pulmonary toxicity [None]
  - Pulmonary oedema [None]
  - Acute respiratory distress syndrome [None]
  - Interstitial lung disease [None]
  - Acute lung injury [None]
  - Pneumonia [None]

NARRATIVE: CASE EVENT DATE: 20241015
